FAERS Safety Report 7887916-9 (Version None)
Quarter: 2011Q4

REPORT INFORMATION
  Report Type: 
  Country: None (occurrence: None)
  Receive Date: 20111103
  Receipt Date: 20111026
  Transmission Date: 20120403
  Serious: Yes (Other)
  Sender: FDA-Public Use
  Company Number: GB-JNJFOC-20111011451

PATIENT
  Age: 42 Year
  Sex: Male

DRUGS (2)
  1. ROGAINE [Suspect]
     Indication: ALOPECIA
     Route: 061
     Dates: start: 20111005, end: 20111008
  2. ROGAINE [Suspect]
     Route: 061

REACTIONS (2)
  - JOINT SWELLING [None]
  - OEDEMA PERIPHERAL [None]
